FAERS Safety Report 6843367-7 (Version None)
Quarter: 2010Q3

REPORT INFORMATION
  Report Type: 
  Country: None (occurrence: None)
  Receive Date: 20100715
  Receipt Date: 20100616
  Transmission Date: 20110219
  Serious: No
  Sender: FDA-Public Use
  Company Number: US-BAYER-201025878NA

PATIENT
  Sex: Male

DRUGS (1)
  1. GENERIC SOTALOL [Suspect]
     Indication: PRODUCT USED FOR UNKNOWN INDICATION

REACTIONS (2)
  - CHEST PAIN [None]
  - DIZZINESS [None]
